FAERS Safety Report 9502124 (Version 2)
Quarter: 2013Q4

REPORT INFORMATION
  Report Type: Spontaneous
  Country: US (occurrence: US)
  Receive Date: 20130905
  Receipt Date: 20131121
  Transmission Date: 20140711
  Serious: No
  Sender: FDA-Public Use
  Company Number: US-009507513-1309USA001678

PATIENT
  Sex: Female

DRUGS (2)
  1. BAIN DE SOLEIL ORANGE GELLE SPF 4 [Suspect]
     Indication: PRODUCT USED FOR UNKNOWN INDICATION
     Dosage: UNK, UNKNOWN
     Route: 061
  2. BAIN DE SOLEIL ORANGE GELLE SPF 4 [Suspect]
     Dosage: UNK, UNKNOWN
     Route: 061

REACTIONS (4)
  - Local swelling [Unknown]
  - Blister [Unknown]
  - Rash [Unknown]
  - Expired drug administered [Unknown]
